FAERS Safety Report 5288566-3 (Version None)
Quarter: 2007Q2

REPORT INFORMATION
  Report Type: 
  Country: None (occurrence: None)
  Receive Date: 20070405
  Receipt Date: 20070315
  Transmission Date: 20071010
  Serious: No
  Sender: FDA-Public Use
  Company Number: US-JNJFOC-20070304247

PATIENT
  Sex: Female

DRUGS (4)
  1. INVEGA [Suspect]
     Route: 048
  2. INVEGA [Suspect]
     Route: 048
  3. INVEGA [Suspect]
     Indication: DRUG USE FOR UNKNOWN INDICATION
     Route: 048
  4. RISPERDAL [Suspect]
     Indication: DRUG USE FOR UNKNOWN INDICATION
     Route: 048

REACTIONS (2)
  - AKATHISIA [None]
  - WEIGHT INCREASED [None]
